FAERS Safety Report 15718898 (Version 1)
Quarter: 2018Q4

REPORT INFORMATION
  Report Type: Spontaneous
  Country: US (occurrence: US)
  Receive Date: 20181129
  Receipt Date: 20181129
  Transmission Date: 20190205
  Serious: No
  Sender: FDA-Public Use
  Company Number: None

PATIENT
  Age: 58 Year
  Sex: Male

DRUGS (1)
  1. OLUMIANT [Suspect]
     Active Substance: BARICITINIB
     Dates: start: 201808, end: 20181128

REACTIONS (2)
  - Gastric disorder [None]
  - Nausea [None]

NARRATIVE: CASE EVENT DATE: 20181128
